FAERS Safety Report 24894110 (Version 1)
Quarter: 2025Q1

REPORT INFORMATION
  Report Type: Spontaneous
  Country: US (occurrence: None)
  Receive Date: 20250127
  Receipt Date: 20250127
  Transmission Date: 20250409
  Serious: No
  Sender: FDA-CTU
  Company Number: None

PATIENT
  Age: 17 Year
  Sex: Female

DRUGS (1)
  1. VTAMA [Suspect]
     Active Substance: TAPINAROF
     Indication: Psoriasis
     Dosage: OTHER QUANTITY : APPLYATHINKLAYERTOAFFECTEDAREAS;?FREQUENCY : DAILY;?
     Route: 001
     Dates: start: 202411

REACTIONS (1)
  - Back disorder [None]
